FAERS Safety Report 5578468-7 (Version None)
Quarter: 2007Q4

REPORT INFORMATION
  Report Type: 
  Country: None (occurrence: None)
  Receive Date: 20071227
  Receipt Date: 20071205
  Transmission Date: 20080405
  Serious: Yes (Other)
  Sender: FDA-Public Use
  Company Number: URSO-2007-207F-UP1

PATIENT
  Age: 38 Year
  Sex: Female

DRUGS (1)
  1. URSODEOXYCHOLIC ACID (DELURSAN (R)) TABLETS 250 MG [Suspect]
     Indication: BILIARY CIRRHOSIS PRIMARY
     Dosage: 500 MG PO
     Route: 048
     Dates: start: 20071012, end: 20071016

REACTIONS (1)
  - CYTOLYTIC HEPATITIS [None]
